FAERS Safety Report 14513728 (Version 1)
Quarter: 2018Q1

REPORT INFORMATION
  Report Type: Spontaneous
  Country: US (occurrence: US)
  Receive Date: 20180209
  Receipt Date: 20180209
  Transmission Date: 20180509
  Serious: No
  Sender: FDA-Public Use
  Company Number: US-ALLERGAN-1766723US

PATIENT
  Age: 68 Year

DRUGS (2)
  1. RESTASIS [Suspect]
     Active Substance: CYCLOSPORINE
     Indication: DRY EYE
     Dosage: UNK
     Route: 047
  2. REPLENISH [Concomitant]
     Dosage: UNK UNK, PRN

REACTIONS (4)
  - Product dropper issue [Unknown]
  - Product use complaint [Unknown]
  - Pain in extremity [Unknown]
  - Accidental exposure to product [Unknown]
